FAERS Safety Report 5412540-7 (Version None)
Quarter: 2007Q3

REPORT INFORMATION
  Report Type: 
  Country: None (occurrence: None)
  Receive Date: 20070813
  Receipt Date: 20070808
  Transmission Date: 20080115
  Serious: Yes (Hospitalization)
  Sender: FDA-Public Use
  Company Number: B0482657A

PATIENT
  Age: 86 Year
  Sex: Female

DRUGS (7)
  1. ARIXTRA [Suspect]
     Dosage: 2.5MG PER DAY
     Route: 058
     Dates: start: 20070529, end: 20070702
  2. VASTAREL [Concomitant]
  3. PRAVASTATIN [Concomitant]
  4. DAFLON [Concomitant]
  5. COZAAR [Concomitant]
  6. LASIX [Concomitant]
  7. DAFALGAN [Concomitant]

REACTIONS (5)
  - ANAEMIA [None]
  - DUODENAL ULCER [None]
  - EROSIVE OESOPHAGITIS [None]
  - GASTRIC ULCER [None]
  - MELAENA [None]
